FAERS Safety Report 4324685-3 (Version None)
Quarter: 2004Q1

REPORT INFORMATION
  Report Type: 
  Country: None (occurrence: None)
  Receive Date: 20040322
  Receipt Date: 20040312
  Transmission Date: 20041129
  Serious: Yes (Hospitalization)
  Sender: FDA-Public Use
  Company Number: 200410265BVD

PATIENT
  Age: 60 Year
  Sex: Female
  Weight: 60 kg

DRUGS (4)
  1. NIMOTOP [Suspect]
     Indication: HYPERTENSION
     Dosage: 30 MG, QD, ORAL
     Route: 048
     Dates: start: 19550101, end: 20040103
  2. ISCOVER (CLOPIDOGREL SULFATE) [Suspect]
     Indication: PROPHYLAXIS
     Dosage: 75 MG, QD, ORAL
     Route: 048
     Dates: start: 20030401, end: 20040103
  3. DELIX [Concomitant]
  4. METOPROLOL [Concomitant]

REACTIONS (6)
  - BLOOD PRESSURE SYSTOLIC INCREASED [None]
  - DRUG INTERACTION [None]
  - GASTRITIS HAEMORRHAGIC [None]
  - HAEMATOCRIT DECREASED [None]
  - HAEMOGLOBIN DECREASED [None]
  - HEART RATE INCREASED [None]
